FAERS Safety Report 17931218 (Version 2)
Quarter: 2020Q2

REPORT INFORMATION
  Report Type: Spontaneous
  Country: US (occurrence: US)
  Receive Date: 20200623
  Receipt Date: 20200625
  Transmission Date: 20200714
  Serious: No
  Sender: FDA-Public Use
  Company Number: US-PFIZER INC-2020233979

PATIENT
  Age: 65 Year
  Sex: Female
  Weight: 65.31 kg

DRUGS (2)
  1. DETROL [Suspect]
     Active Substance: TOLTERODINE TARTRATE
     Dosage: 8 MG, DAILY
     Route: 048
  2. DETROL LA [Suspect]
     Active Substance: TOLTERODINE TARTRATE
     Dosage: 8 MG, DAILY
     Route: 048

REACTIONS (3)
  - Anxiety [Unknown]
  - Incontinence [Unknown]
  - Product prescribing error [Unknown]
